FAERS Safety Report 15822297 (Version 2)
Quarter: 2019Q1

REPORT INFORMATION
  Report Type: Spontaneous
  Country: JP (occurrence: JP)
  Receive Date: 20190114
  Receipt Date: 20190313
  Transmission Date: 20190417
  Serious: Yes (Hospitalization)
  Sender: FDA-Public Use
  Company Number: JP-PFIZER INC-2019012873

PATIENT
  Age: 61 Year
  Sex: Male
  Weight: 43 kg

DRUGS (6)
  1. CEFTRIAXONE SODIUM 1G PFIZER [Suspect]
     Active Substance: CEFTRIAXONE SODIUM
     Indication: LUNG ABSCESS
     Dosage: 2 G, 1X/DAY
     Route: 041
     Dates: start: 20181126, end: 20181210
  2. TAKECAB [Concomitant]
     Active Substance: VONOPRAZAN FUMURATE
     Dosage: UNK
  3. L-CARBOCISTEINE [Concomitant]
     Active Substance: CARBOCYSTEINE
  4. TRAMCET [Concomitant]
     Active Substance: ACETAMINOPHEN\TRAMADOL
     Dosage: UNK
  5. CELECOX [Concomitant]
     Active Substance: CELECOXIB
     Dosage: UNK
  6. BISOPROLOL FUMARATE. [Concomitant]
     Active Substance: BISOPROLOL FUMARATE
     Dosage: UNK

REACTIONS (1)
  - Interstitial lung disease [Recovering/Resolving]

NARRATIVE: CASE EVENT DATE: 20181207
